FAERS Safety Report 7549124-0 (Version None)
Quarter: 2011Q2

REPORT INFORMATION
  Report Type: 
  Country: None (occurrence: None)
  Receive Date: 20110615
  Receipt Date: 20110609
  Transmission Date: 20111010
  Serious: Yes (Hospitalization, Other)
  Sender: FDA-Public Use
  Company Number: US-GENZYME-RENA-1001203

PATIENT
  Age: 90 Year
  Sex: Female

DRUGS (2)
  1. RENVELA [Suspect]
     Indication: HYPERPHOSPHATAEMIA
     Route: 048
  2. RENVELA [Suspect]
     Dosage: 2.4 G, TID
     Route: 048

REACTIONS (4)
  - CERVICAL VERTEBRAL FRACTURE [None]
  - URINARY TRACT INFECTION [None]
  - FALL [None]
  - VOMITING [None]
